FAERS Safety Report 7090129-4 (Version None)
Quarter: 2010Q4

REPORT INFORMATION
  Report Type: 
  Country: None (occurrence: None)
  Receive Date: 20101105
  Receipt Date: 20101105
  Transmission Date: 20110411
  Serious: No
  Sender: FDA-Public Use
  Company Number: None

PATIENT
  Age: 61 Year
  Sex: Female
  Weight: 83.9154 kg

DRUGS (3)
  1. CITALOPRAM HYDROBROMIDE [Suspect]
     Indication: DEPRESSION
     Dosage: 20 MG 1X DAY
  2. TRAMADOL HCL [Suspect]
     Indication: PAIN
     Dosage: 50 MG 1 OR 2 X 6 HOURS
     Dates: start: 20101019
  3. WARFARIN [Suspect]
     Indication: BLOOD DISORDER
     Dosage: 4 1/2 MG DAILY

REACTIONS (4)
  - DIZZINESS [None]
  - DYSPNOEA [None]
  - MIDDLE INSOMNIA [None]
  - PALPITATIONS [None]
